FAERS Safety Report 5403700-X (Version None)
Quarter: 2007Q3

REPORT INFORMATION
  Report Type: 
  Country: None (occurrence: None)
  Receive Date: 20070713
  Receipt Date: 20070515
  Transmission Date: 20080115
  Serious: Yes (Hospitalization)
  Sender: FDA-Public Use
  Company Number: REM_00353_2007

PATIENT
  Age: 41 Year
  Sex: Female
  Weight: 61.8 kg

DRUGS (5)
  1. REMODULIN [Suspect]
     Indication: PULMONARY HYPERTENSION
     Dosage: 0 UG/KG (0 UG/KG, 1 IN 1 MIN), INTRAVENOUS
     Route: 042
     Dates: start: 20030101
  2. COUMADIN [Concomitant]
  3. REVATIO [Concomitant]
  4. LEVOXYL [Concomitant]
  5. POTASSIUM CHLORIDE [Concomitant]

REACTIONS (1)
  - ACCIDENTAL OVERDOSE [None]
